FAERS Safety Report 5068317-8 (Version None)
Quarter: 2006Q3

REPORT INFORMATION
  Report Type: 
  Country: None (occurrence: None)
  Receive Date: 20060802
  Receipt Date: 20050801
  Transmission Date: 20061208
  Serious: No
  Sender: FDA-Public Use
  Company Number: US-BRISTOL-MYERS SQUIBB COMPANY-13058458

PATIENT
  Age: 81 Year
  Sex: Female

DRUGS (12)
  1. COUMADIN [Suspect]
     Dosage: START DATE UNKNOWN, 5 MG ONCE DAILY SINCE MAY-2005
  2. DIGOXIN [Concomitant]
  3. ATENOLOL [Concomitant]
  4. MONOPRIL [Concomitant]
  5. FUROSEMIDE [Concomitant]
  6. ENSURE [Concomitant]
  7. RETROVIR [Concomitant]
  8. VIRAMUNE [Concomitant]
  9. VIREAD [Concomitant]
  10. MULTIVITAMIN W/IRON [Concomitant]
  11. AMBIEN [Concomitant]
  12. MYLANTA [Concomitant]

REACTIONS (1)
  - INTERNATIONAL NORMALISED RATIO DECREASED [None]
